FAERS Safety Report 7637436-1 (Version None)
Quarter: 2011Q3

REPORT INFORMATION
  Report Type: 
  Country: None (occurrence: None)
  Receive Date: 20110726
  Receipt Date: 20110718
  Transmission Date: 20111222
  Serious: Yes (Other)
  Sender: FDA-Public Use
  Company Number: US-PFIZER INC-2011099041

PATIENT
  Sex: Female

DRUGS (3)
  1. CHANTIX [Suspect]
     Indication: SMOKING CESSATION THERAPY
     Dosage: UNK
     Dates: start: 20060601, end: 20060801
  2. LORTAB [Concomitant]
     Indication: ANALGESIC THERAPY
     Dosage: UNK
     Dates: start: 20030101
  3. STADOL [Concomitant]
     Indication: MIGRAINE
     Dosage: UNK
     Dates: start: 20030101

REACTIONS (7)
  - SUICIDAL IDEATION [None]
  - DEPRESSION [None]
  - AGGRESSION [None]
  - ANXIETY [None]
  - PARANOIA [None]
  - ANGER [None]
  - MIGRAINE [None]
